FAERS Safety Report 6505390-1 (Version None)
Quarter: 2009Q4

REPORT INFORMATION
  Report Type: 
  Country: None (occurrence: None)
  Receive Date: 20091217
  Receipt Date: 20091217
  Transmission Date: 20100525
  Serious: Yes (Life-Threatening, Disabling)
  Sender: FDA-Public Use
  Company Number: None

PATIENT
  Age: 53 Year
  Sex: Male
  Weight: 98.6 kg

DRUGS (1)
  1. BEVACIZUMAB GENENTECH [Suspect]
     Dosage: 540MG ONCE IV
     Route: 042

REACTIONS (6)
  - FEELING HOT [None]
  - FLUSHING [None]
  - HYPOTENSION [None]
  - OXYGEN SATURATION DECREASED [None]
  - SEPSIS [None]
  - TYPE IV HYPERSENSITIVITY REACTION [None]
